FAERS Safety Report 18793699 (Version 1)
Quarter: 2021Q1

REPORT INFORMATION
  Report Type: Spontaneous
  Country: DE (occurrence: DE)
  Receive Date: 20210127
  Receipt Date: 20210127
  Transmission Date: 20210419
  Serious: Yes (Hospitalization)
  Sender: FDA-Public Use
  Company Number: DE-ADVANZ PHARMA-E2B_00011749

PATIENT

DRUGS (24)
  1. HYDROXYCHLOROQUINE [Suspect]
     Active Substance: HYDROXYCHLOROQUINE
     Dosage: 200 MG, QD, QUENCYL
     Route: 048
  2. NOVALGIN [Concomitant]
     Dosage: 500 MG, QID
     Route: 048
  3. LYRICA [Concomitant]
     Active Substance: PREGABALIN
     Dosage: 25 MG, BID
     Route: 048
  4. SIMVASTATIN. [Concomitant]
     Active Substance: SIMVASTATIN
     Dosage: 20 MG, QD
     Route: 048
  5. PERENTEROL FORTE 250MG [Concomitant]
     Dosage: 250 MG
     Route: 048
  6. NEBIVOLOL. [Concomitant]
     Active Substance: NEBIVOLOL
     Dosage: 5 MG, QD
     Route: 048
  7. RAMIPRIL. [Concomitant]
     Active Substance: RAMIPRIL
     Dosage: 2.5 MG, QD
     Route: 048
  8. IBEROGAST N [Concomitant]
     Active Substance: HERBALS
     Dosage: BEDARF, TROPFEN
     Route: 048
  9. PREDNISOLONE. [Suspect]
     Active Substance: PREDNISOLONE
     Dosage: 5 MG, QD
     Route: 048
  10. FUROSEMID [Concomitant]
     Active Substance: FUROSEMIDE
     Dosage: 125 MG, BID
     Route: 048
  11. VOMEX A [Concomitant]
     Active Substance: DIMENHYDRINATE
     Dosage: BEDARF, DRAGEES
     Route: 048
  12. APIDRA [Concomitant]
     Active Substance: INSULIN GLULISINE
     Dosage: SCHEMA, INJEKTIONS?/INFUSIONSLOSUNG
     Route: 058
  13. ECURAL SALBE [Concomitant]
     Dosage: UNK, BID, SALBE
     Route: 062
  14. ALLOPURINOL. [Concomitant]
     Active Substance: ALLOPURINOL
     Dosage: 100 MG, BID
     Route: 048
  15. ASS 100 [Concomitant]
     Active Substance: ASPIRIN
     Dosage: 100 MG, QD
     Route: 048
  16. L?THYROXIN 50 [Concomitant]
     Active Substance: LEVOTHYROXINE SODIUM
     Dosage: 50 UG
     Route: 048
  17. PIPAMPERONE [Concomitant]
     Active Substance: PIPAMPERONE
     Dosage: BEDARF, SAFT
     Route: 048
  18. DEKRISTOL 20000I.E. [Concomitant]
     Dosage: UNK, QD
     Route: 048
  19. MAGNETRANS FORTE 150MG [Concomitant]
     Dosage: 150 MG, BEDARF, KAPSELN
     Route: 048
  20. TOUJEO 300 EINHEITEN/ML INJEKTIONSLOSUNG IN FERTIGPEN [Concomitant]
     Dosage: 300/ML
     Route: 058
  21. FENTANYL. [Concomitant]
     Active Substance: FENTANYL
     Dosage: SCHEMA, PFLASTER TRANSDERMAL
     Route: 062
  22. MOVICOL [Concomitant]
     Active Substance: POLYETHYLENE GLYCOL 3350\POTASSIUM CHLORIDE\SODIUM BICARBONATE\SODIUM CHLORIDE
     Dosage: 0.05 G
     Route: 048
  23. PANTOPRAZOLE [Concomitant]
     Active Substance: PANTOPRAZOLE
     Dosage: 40 MG, BID
     Route: 048
  24. HYDROCHLOROTHIAZIDE. [Concomitant]
     Active Substance: HYDROCHLOROTHIAZIDE
     Dosage: 25 MG, QD
     Route: 048

REACTIONS (7)
  - General physical health deterioration [Unknown]
  - Vomiting [Unknown]
  - Pyrexia [Unknown]
  - Dysuria [Unknown]
  - Chest pain [Unknown]
  - Dyspnoea [Unknown]
  - Headache [Unknown]
